FAERS Safety Report 6293087-5 (Version None)
Quarter: 2009Q3

REPORT INFORMATION
  Report Type: 
  Country: None (occurrence: None)
  Receive Date: 20090731
  Receipt Date: 20090729
  Transmission Date: 20100115
  Serious: Yes (Other)
  Sender: FDA-Public Use
  Company Number: GB-BRISTOL-MYERS SQUIBB COMPANY-14721138

PATIENT
  Age: 75 Year
  Sex: Male
  Weight: 63 kg

DRUGS (20)
  1. ARIPIPRAZOLE [Suspect]
     Indication: MAJOR DEPRESSION
     Route: 048
     Dates: start: 20090626
  2. DULOXETINE HYDROCHLORIDE [Suspect]
     Indication: DEPRESSION
     Route: 048
     Dates: start: 20090626, end: 20090709
  3. AMIODARONE HCL [Concomitant]
  4. AMISULPRIDE [Concomitant]
  5. ASPIRIN [Concomitant]
  6. CALCICHEW D3 [Concomitant]
  7. CEPHALEXIN [Concomitant]
  8. CHLORAMPHENICOL [Concomitant]
  9. DIAZEPAM [Concomitant]
  10. GLANDOSANE [Concomitant]
  11. HYDROXOCOBALAMIN [Concomitant]
  12. LACTULOSE [Concomitant]
     Dosage: LACTULOSE  SOLUTION
  13. LEVOTHYROXINE SODIUM [Concomitant]
  14. LORAZEPAM [Concomitant]
  15. MIRTAZAPINE [Concomitant]
  16. SERTRALINE HCL [Concomitant]
  17. TAMSULOSIN HCL [Concomitant]
  18. TRIMETHOPRIM [Concomitant]
  19. ZOPICLONE [Concomitant]
  20. CLOPIDOGREL BISULFATE [Concomitant]

REACTIONS (3)
  - APHTHOUS STOMATITIS [None]
  - PRURITUS [None]
  - RASH [None]
